FAERS Safety Report 16784417 (Version 1)
Quarter: 2019Q3

REPORT INFORMATION
  Report Type: Spontaneous
  Country: KR (occurrence: KR)
  Receive Date: 20190909
  Receipt Date: 20190909
  Transmission Date: 20191005
  Serious: Yes (Other)
  Sender: FDA-Public Use
  Company Number: KR-009507513-1909KOR002445

PATIENT
  Sex: Female

DRUGS (1)
  1. DESOGESTREL (+) ETHINYL ESTRADIOL [Suspect]
     Active Substance: DESOGESTREL\ETHINYL ESTRADIOL
     Indication: CONTRACEPTION
     Dosage: 1DF, 1 TIME PER 1 DAY
     Route: 048

REACTIONS (2)
  - Inappropriate schedule of product administration [Unknown]
  - Haemorrhage [Unknown]
